FAERS Safety Report 9906857 (Version 2)
Quarter: 2014Q2

REPORT INFORMATION
  Report Type: Spontaneous
  Country: None (occurrence: US)
  Receive Date: 20140218
  Receipt Date: 20140501
  Transmission Date: 20141212
  Serious: Yes (Hospitalization)
  Sender: FDA-Public Use
  Company Number: US-EISAI INC-AP356-00443-SPO-US

PATIENT
  Age: 59 Year
  Sex: Male
  Weight: 136.36 kg

DRUGS (16)
  1. BELVIQ (LORCASERIN HYDROCHLORIDE) [Suspect]
     Indication: WEIGHT DECREASED
     Route: 048
     Dates: start: 20140204, end: 20140205
  2. BUSPAR [Interacting]
     Indication: ANXIETY
     Dosage: 60 MG EVERY MORNING, 10 MG EVERY EVENING AT BEDTIME
     Route: 048
     Dates: start: 2004
  3. MUCINEX-LA [Concomitant]
     Indication: INCREASED VISCOSITY OF NASAL SECRETION
     Dosage: UNKNOWN
     Route: 048
     Dates: start: 2006
  4. FLUTICASONE [Concomitant]
     Indication: SINUSITIS
     Dosage: UNKNOWN
     Route: 045
     Dates: start: 2011
  5. DIOVAN HCT [Concomitant]
     Indication: HYPERTENSION
     Route: 048
     Dates: start: 2012
  6. COENZYME Q10 [Concomitant]
     Dosage: 1 TABLET DAILY
     Route: 048
  7. VITAMIN C [Concomitant]
     Route: 048
  8. CHROMIUM PICOLINATE [Concomitant]
     Dosage: 500 MCG/DAY
     Route: 048
  9. BENADRYL [Concomitant]
  10. CALCIUM WITH VITAMIN D [Concomitant]
     Dosage: UNKNOWN
     Route: 048
  11. NAPROSYN [Concomitant]
     Route: 048
  12. ASA [Concomitant]
     Indication: PROPHYLAXIS
     Route: 048
  13. OMEGA 3 FATTY ACID [Concomitant]
     Dosage: 1 CAPSULE BID
     Route: 048
  14. MAGNESIUM [Concomitant]
     Route: 048
  15. GLUCOSAMINE/CHONDROITIN [Concomitant]
     Dosage: 1 TABLET TWICE DAILY
     Route: 048
  16. VITAMIN B12 [Concomitant]
     Route: 048

REACTIONS (3)
  - Atrial fibrillation [Recovered/Resolved]
  - Serotonin syndrome [Recovered/Resolved]
  - Drug interaction [Recovered/Resolved]
